FAERS Safety Report 12113070 (Version 2)
Quarter: 2017Q1

REPORT INFORMATION
  Report Type: Spontaneous
  Country: US (occurrence: US)
  Receive Date: 20160225
  Receipt Date: 20170308
  Transmission Date: 20170428
  Serious: No
  Sender: FDA-Public Use
  Company Number: US-CELGENEUS-USA-2016024345

PATIENT
  Age: 53 Year
  Sex: Female

DRUGS (3)
  1. TENORET [Concomitant]
     Indication: PSORIASIS
     Route: 061
     Dates: start: 201608
  2. GUANFACINE. [Concomitant]
     Active Substance: GUANFACINE
     Indication: PSORIASIS
     Route: 061
     Dates: start: 201608
  3. OTEZLA [Suspect]
     Active Substance: APREMILAST
     Indication: PSORIASIS
     Dosage: TITRATION
     Route: 048
     Dates: start: 20160208

REACTIONS (1)
  - Diarrhoea [Unknown]

NARRATIVE: CASE EVENT DATE: 20160216
